FAERS Safety Report 4577926-1 (Version None)
Quarter: 2005Q1

REPORT INFORMATION
  Report Type: 
  Country: None (occurrence: None)
  Receive Date: 20050209
  Receipt Date: 20050126
  Transmission Date: 20050727
  Serious: Yes (Hospitalization)
  Sender: FDA-Public Use
  Company Number: 2005-124662-NL

PATIENT
  Age: 37 Year
  Sex: Female

DRUGS (1)
  1. DESOLETT [Suspect]
     Indication: ORAL CONTRACEPTION
     Dosage: DF ORAL
     Route: 048
     Dates: start: 19980201, end: 19981013

REACTIONS (9)
  - ACTIVATED PROTEIN C RESISTANCE [None]
  - ARTERIAL DISORDER [None]
  - DEEP VEIN THROMBOSIS [None]
  - INTERMITTENT CLAUDICATION [None]
  - PERIPHERAL EMBOLISM [None]
  - PULMONARY EMBOLISM [None]
  - PULMONARY INFARCTION [None]
  - RENAL INFARCT [None]
  - VENOUS INSUFFICIENCY [None]
